FAERS Safety Report 5971738-X (Version None)
Quarter: 2008Q4

REPORT INFORMATION
  Report Type: 
  Country: None (occurrence: None)
  Receive Date: 20081201
  Receipt Date: 20081124
  Transmission Date: 20090506
  Serious: Yes (Other)
  Sender: FDA-Public Use
  Company Number: US-BAYER-200813754BCC

PATIENT
  Sex: Male

DRUGS (10)
  1. ASPIRIN [Suspect]
     Indication: CARDIAC DISORDER
     Dosage: TOTAL DAILY DOSE: 325 MG  UNIT DOSE: 325 MG
     Route: 048
     Dates: start: 20000101, end: 20050101
  2. ASPIRIN [Suspect]
     Dosage: TOTAL DAILY DOSE: 325 MG  UNIT DOSE: 325 MG
     Route: 048
     Dates: start: 20050101, end: 20080101
  3. ASPIRIN [Suspect]
     Dosage: TOTAL DAILY DOSE: 325 MG  UNIT DOSE: 325 MG
     Route: 048
     Dates: start: 20080701, end: 20080901
  4. ASPIRIN [Suspect]
     Dosage: TOTAL DAILY DOSE: 81 MG  UNIT DOSE: 81 MG
     Route: 048
     Dates: start: 20080901
  5. TENORMIN [Concomitant]
     Dates: start: 20080916
  6. ENALAPRIL MALEATE [Concomitant]
     Dates: start: 20080916
  7. SINGULAIR [Concomitant]
     Route: 055
     Dates: start: 20080701
  8. CRESTOR [Concomitant]
     Dates: start: 20080701
  9. ISORBID [Concomitant]
     Dates: start: 20080701
  10. CELEXA [Concomitant]
     Indication: DEPRESSION
     Dates: start: 20080701

REACTIONS (3)
  - NASAL POLYPS [None]
  - POLYP [None]
  - SINUSITIS [None]
